FAERS Safety Report 5607616-5 (Version None)
Quarter: 2008Q1

REPORT INFORMATION
  Report Type: 
  Country: None (occurrence: None)
  Receive Date: 20080130
  Receipt Date: 20080121
  Transmission Date: 20080703
  Serious: Yes (Hospitalization)
  Sender: FDA-Public Use
  Company Number: PHHO2007DE19392

PATIENT
  Age: 48 Year
  Sex: Female

DRUGS (3)
  1. CERTICAN [Suspect]
     Indication: RENAL TRANSPLANT
     Dosage: 1.25 MG, BID
     Route: 048
     Dates: start: 20060104
  2. URBASON [Concomitant]
     Indication: RENAL TRANSPLANT
  3. MYFORTIC [Suspect]
     Indication: RENAL TRANSPLANT
     Dosage: 720 MG, BID
     Route: 048

REACTIONS (3)
  - BLOOD CREATININE INCREASED [None]
  - CHRONIC ALLOGRAFT NEPHROPATHY [None]
  - PROTEINURIA [None]
